FAERS Safety Report 9189003 (Version 5)
Quarter: 2013Q3

REPORT INFORMATION
  Report Type: Spontaneous
  Country: FR (occurrence: FR)
  Receive Date: 20130326
  Receipt Date: 20130725
  Transmission Date: 20140515
  Serious: Yes (Life-Threatening, Hospitalization, Other)
  Sender: FDA-Public Use
  Company Number: FR-AMGEN-FRASP2012013869

PATIENT
  Age: 59 Year
  Sex: Female

DRUGS (5)
  1. ENBREL [Suspect]
     Indication: RHEUMATOID ARTHRITIS
     Dosage: 50 MG, WEEKLY
     Route: 058
     Dates: start: 200707, end: 20111216
  2. METHOTREXATE SODIUM [Suspect]
     Indication: RHEUMATOID ARTHRITIS
     Dosage: 10 TO 15 MG WEEKLY
     Dates: start: 2004, end: 200801
  3. METHOTREXATE SODIUM [Suspect]
     Dosage: UNK
     Dates: start: 200804
  4. SALAZOPYRINE [Concomitant]
     Indication: RHEUMATOID ARTHRITIS
     Dosage: 2000 MG, 1X/DAY
     Dates: start: 200601, end: 201112
  5. NOVONORM [Concomitant]
     Indication: TYPE 2 DIABETES MELLITUS
     Dosage: 0.5 MG, TID
     Route: 048
     Dates: start: 2011

REACTIONS (5)
  - B-cell lymphoma [Recovering/Resolving]
  - Rheumatoid arthritis [Recovered/Resolved]
  - Dyspnoea exertional [Unknown]
  - Neutropenia [Not Recovered/Not Resolved]
  - Dermo-hypodermitis [Unknown]
